FAERS Safety Report 4852748-2 (Version None)
Quarter: 2005Q4

REPORT INFORMATION
  Report Type: 
  Country: None (occurrence: None)
  Receive Date: 20051125
  Receipt Date: 20050419
  Transmission Date: 20060501
  Serious: Yes (Hospitalization, Other)
  Sender: FDA-Public Use
  Company Number: 2005058153

PATIENT
  Age: 69 Year
  Sex: Male
  Weight: 127.0072 kg

DRUGS (6)
  1. TIKOSYN [Suspect]
     Indication: ATRIAL FIBRILLATION
     Dosage: 1000 MCG (500 MCG,2 IN 1 D),ORAL
     Route: 048
     Dates: start: 20050201, end: 20050201
  2. TIKOSYN [Suspect]
     Indication: ATRIAL FIBRILLATION
     Dosage: 1000 MCG (500 MCG,2 IN 1 D),ORAL
     Route: 048
     Dates: start: 20050101
  3. FLUVASTATIN (FLUVASTATIN) [Concomitant]
  4. ATENOLOL [Concomitant]
  5. WARFARIN SODIUM [Concomitant]
  6. FISH OIL (FISH OIL) [Concomitant]

REACTIONS (2)
  - ATRIAL FIBRILLATION [None]
  - BRONCHITIS [None]
